FAERS Safety Report 17115736 (Version 1)
Quarter: 2019Q4

REPORT INFORMATION
  Report Type: Spontaneous
  Country: HR (occurrence: HR)
  Receive Date: 20191205
  Receipt Date: 20191205
  Transmission Date: 20200122
  Serious: Yes (Hospitalization)
  Sender: FDA-Public Use
  Company Number: HR-ABBVIE-19K-216-3180677-00

PATIENT
  Age: 80 Year
  Sex: Male

DRUGS (3)
  1. DUODOPA [Suspect]
     Active Substance: CARBIDOPA\LEVODOPA
     Dosage: CONTINUOUS DOSE: 3.3 ML/H
     Route: 050
  2. DUODOPA [Suspect]
     Active Substance: CARBIDOPA\LEVODOPA
     Indication: PARKINSON^S DISEASE
     Dosage: MORNING DOSE: 9 ML?CONTINUOUS DOSE: 5 ML/H?BOLUS DOSE: 1 ML
     Route: 050
     Dates: start: 201802
  3. APIXABAN [Concomitant]
     Active Substance: APIXABAN
     Indication: PRODUCT USED FOR UNKNOWN INDICATION

REACTIONS (5)
  - Basal cell carcinoma [Unknown]
  - Pseudoachalasia [Unknown]
  - Weight decreased [Unknown]
  - Dysphagia [Unknown]
  - Insomnia [Unknown]

NARRATIVE: CASE EVENT DATE: 201807
